FAERS Safety Report 26213837 (Version 1)
Quarter: 2025Q4

REPORT INFORMATION
  Report Type: Report from Study
  Country: US (occurrence: US)
  Receive Date: 20251230
  Receipt Date: 20251230
  Transmission Date: 20260119
  Serious: Yes (Hospitalization)
  Sender: PFIZER
  Company Number: US-PFIZER INC-PV202500071250

PATIENT
  Age: 47 Year
  Sex: Female

DRUGS (3)
  1. LORBRENA [Suspect]
     Active Substance: LORLATINIB
     Indication: Lung neoplasm malignant
     Dosage: 100 MG
  2. LORBRENA [Suspect]
     Active Substance: LORLATINIB
     Dosage: 75 MG
  3. LORBRENA [Suspect]
     Active Substance: LORLATINIB
     Dosage: 50 MG

REACTIONS (21)
  - Inflammation [Unknown]
  - Cardiac disorder [Unknown]
  - Brain fog [Unknown]
  - Dizziness [Unknown]
  - Nausea [Unknown]
  - Fatigue [Unknown]
  - Swelling [Unknown]
  - Oedema [Unknown]
  - Blood cholesterol increased [Recovered/Resolved]
  - Disturbance in attention [Unknown]
  - Speech disorder [Unknown]
  - Paraesthesia [Unknown]
  - Hypoaesthesia [Unknown]
  - Weight increased [Unknown]
  - Diarrhoea [Unknown]
  - Peripheral swelling [Unknown]
  - Memory impairment [Unknown]
  - Cough [Unknown]
  - Gastrointestinal disorder [Unknown]
  - Pancreatic enzymes abnormal [Unknown]
  - Tachycardia [Unknown]
